FAERS Safety Report 5444426-6 (Version None)
Quarter: 2007Q3

REPORT INFORMATION
  Report Type: 
  Country: None (occurrence: None)
  Receive Date: 20070904
  Receipt Date: 20070904
  Transmission Date: 20080115
  Serious: Yes (Hospitalization)
  Sender: FDA-Public Use
  Company Number: None

PATIENT
  Sex: Male
  Weight: 79 kg

DRUGS (5)
  1. TAXOTERE [Suspect]
     Dosage: 152 MG
     Dates: start: 20070813
  2. PREDNISONE TAB [Suspect]
     Dosage: 170 MG
     Dates: start: 20070830
  3. DEXAMETHASONE 0.5MG TAB [Suspect]
     Dosage: 24 MG
     Dates: start: 20070813
  4. COLACE [Concomitant]
  5. LUPRON DEPOT-3 [Concomitant]

REACTIONS (4)
  - ANOREXIA [None]
  - ASTHENIA [None]
  - HYPOTENSION [None]
  - NAUSEA [None]
